FAERS Safety Report 5162082-1 (Version None)
Quarter: 2007Q1

REPORT INFORMATION
  Report Type: 
  Country: None (occurrence: None)
  Receive Date: 20061121
  Receipt Date: 20061117
  Transmission Date: 20070707
  Serious: Yes (Hospitalization)
  Sender: FDA-Public Use
  Company Number: TCI2006A00800

PATIENT
  Age: 60 Year
  Sex: Male

DRUGS (3)
  1. LANSAP (LANSOPRAZOLE, CLARITHROMYCIN, AMOXICILLIN) [Suspect]
     Indication: GASTRITIS EROSIVE
     Route: 048
     Dates: start: 20050101
  2. LANSAP (LANSOPRAZOLE, CLARITHROMYCIN, AMOXICILLIN) [Suspect]
     Indication: HELICOBACTER INFECTION
     Route: 048
     Dates: start: 20050101
  3. DISOPYRAMIDE [Suspect]
     Dosage: 150-300 MG/DAY
     Dates: start: 19990101

REACTIONS (9)
  - DECREASED APPETITE [None]
  - DELIRIUM [None]
  - DIALYSIS [None]
  - DIPLOPIA [None]
  - DIZZINESS [None]
  - DRUG INTERACTION [None]
  - DYSGEUSIA [None]
  - HYPOGLYCAEMIA [None]
  - VERTIGO [None]
